FAERS Safety Report 25061165 (Version 1)
Quarter: 2025Q1

REPORT INFORMATION
  Report Type: Spontaneous
  Country: US (occurrence: US)
  Receive Date: 20250310
  Receipt Date: 20250310
  Transmission Date: 20250408
  Serious: No
  Sender: ABBVIE
  Company Number: US-ABBVIE-6170687

PATIENT
  Age: 62 Year
  Sex: Male

DRUGS (1)
  1. HUMIRA [Suspect]
     Active Substance: ADALIMUMAB
     Indication: Rheumatoid arthritis
     Route: 058

REACTIONS (4)
  - Psoriatic arthropathy [Unknown]
  - Injection site erythema [Unknown]
  - Injection site discharge [Not Recovered/Not Resolved]
  - Arthritis [Unknown]

NARRATIVE: CASE EVENT DATE: 20250306
